FAERS Safety Report 5136449-1 (Version None)
Quarter: 2006Q4

REPORT INFORMATION
  Report Type: 
  Country: None (occurrence: None)
  Receive Date: 20061027
  Receipt Date: 20060502
  Transmission Date: 20070319
  Serious: No
  Sender: FDA-Public Use
  Company Number: US-BRISTOL-MYERS SQUIBB COMPANY-13396528

PATIENT
  Age: 81 Year
  Sex: Female

DRUGS (13)
  1. KENALOG-40 [Suspect]
     Indication: MACULAR OEDEMA
     Route: 031
     Dates: start: 20060419, end: 20060419
  2. LEVOXYL [Concomitant]
  3. PREMARIN [Concomitant]
  4. LANOXIN [Concomitant]
  5. ZINC [Concomitant]
  6. LIPITOR [Concomitant]
  7. WARFARIN SODIUM [Concomitant]
  8. KLOR-CON [Concomitant]
  9. CALCIUM GLUCONATE [Concomitant]
  10. DIOVAN [Concomitant]
  11. FUROSEMIDE [Concomitant]
  12. SPIRONOLACTONE [Concomitant]
  13. ASCORBIC ACID [Concomitant]

REACTIONS (3)
  - EYE INFLAMMATION [None]
  - HYPOPYON [None]
  - VISUAL DISTURBANCE [None]
